FAERS Safety Report 8558342 (Version 2)
Quarter: 2013Q2

REPORT INFORMATION
  Report Type: Spontaneous
  Country: US (occurrence: US)
  Receive Date: 20120511
  Receipt Date: 20130510
  Transmission Date: 20140414
  Serious: No
  Sender: FDA-Public Use
  Company Number: US-GLAXOSMITHKLINE-A0962005A

PATIENT
  Age: 56 Year
  Sex: Female

DRUGS (4)
  1. TYKERB [Suspect]
     Indication: PRODUCT USED FOR UNKNOWN INDICATION
     Dosage: 1000MGD PER DAY
     Route: 048
     Dates: start: 20120110
  2. SOAP [Suspect]
  3. HERCEPTIN [Concomitant]
     Route: 042
  4. CHEMOTHERAPY [Concomitant]
     Route: 065
     Dates: end: 20120130

REACTIONS (4)
  - Dysuria [Recovered/Resolved]
  - Diarrhoea [Unknown]
  - Neuropathy peripheral [Unknown]
  - Muscle spasms [Unknown]
